FAERS Safety Report 15965563 (Version 2)
Quarter: 2019Q2

REPORT INFORMATION
  Report Type: Spontaneous
  Country: US (occurrence: US)
  Receive Date: 20190215
  Receipt Date: 20190515
  Transmission Date: 20190711
  Serious: No
  Sender: FDA-Public Use
  Company Number: US-RIGEL PHARMACEUTICALS, INC.-2018FOS000226

PATIENT

DRUGS (5)
  1. TAVALISSE [Suspect]
     Active Substance: FOSTAMATINIB
     Indication: IMMUNE THROMBOCYTOPENIC PURPURA
     Dosage: 100 MG, BID
     Route: 048
     Dates: start: 20180918, end: 20180928
  2. TAVALISSE [Suspect]
     Active Substance: FOSTAMATINIB
     Dosage: 100 MG, DAILY
     Route: 048
     Dates: start: 20180928, end: 20181014
  3. TAVALISSE [Suspect]
     Active Substance: FOSTAMATINIB
     Dosage: 100 MG, BID
     Route: 048
     Dates: start: 20181014, end: 20181130
  4. TAVALISSE [Suspect]
     Active Substance: FOSTAMATINIB
     Dosage: 100 MG, EVERY OTHER DAY
     Route: 048
     Dates: start: 20190219
  5. TAVALISSE [Suspect]
     Active Substance: FOSTAMATINIB
     Dosage: 100 MG, DAILY
     Route: 048
     Dates: start: 20190104, end: 20190125

REACTIONS (3)
  - Memory impairment [Unknown]
  - Feeling abnormal [Unknown]
  - Tooth infection [Unknown]
